FAERS Safety Report 16826405 (Version 1)
Quarter: 2019Q3

REPORT INFORMATION
  Report Type: Spontaneous
  Country: FR (occurrence: FR)
  Receive Date: 20190919
  Receipt Date: 20190919
  Transmission Date: 20191005
  Serious: Yes (Hospitalization, Other)
  Sender: FDA-Public Use
  Company Number: FR-PFIZER INC-2019397059

PATIENT
  Age: 54 Year
  Sex: Male
  Weight: 109 kg

DRUGS (3)
  1. APRANAX [NAPROXEN] [Concomitant]
     Dosage: 750 MG, UNK
  2. NOVATREX NOS [Suspect]
     Active Substance: AZITHROMYCIN OR METHOTREXATE SODIUM
     Indication: PSORIATIC ARTHROPATHY
     Dosage: UNK
     Route: 048
     Dates: start: 201209, end: 20190528
  3. SIMPONI [Suspect]
     Active Substance: GOLIMUMAB
     Indication: PSORIATIC ARTHROPATHY
     Dosage: UNK
     Route: 058
     Dates: start: 201209, end: 20190528

REACTIONS (1)
  - Acral lentiginous melanoma [Recovered/Resolved with Sequelae]

NARRATIVE: CASE EVENT DATE: 20190611
